FAERS Safety Report 25741666 (Version 2)
Quarter: 2025Q3

REPORT INFORMATION
  Report Type: Report from Study
  Country: SG (occurrence: SG)
  Receive Date: 20250829
  Receipt Date: 20250922
  Transmission Date: 20251021
  Serious: Yes (Hospitalization)
  Sender: IOVANCE BIOTHERAPEUTICS MANUFACTURING LLC
  Company Number: SG-IOVANCE BIOTHERAPEUTICS INC.-IOV2025000067

PATIENT

DRUGS (42)
  1. ALDESLEUKIN [Suspect]
     Active Substance: ALDESLEUKIN
     Indication: Product used for unknown indication
     Route: 065
     Dates: start: 20250625, end: 20250625
  2. ALDESLEUKIN [Suspect]
     Active Substance: ALDESLEUKIN
     Route: 065
     Dates: start: 20250626, end: 20250626
  3. ALDESLEUKIN [Suspect]
     Active Substance: ALDESLEUKIN
     Route: 065
     Dates: start: 20250626, end: 20250626
  4. ALDESLEUKIN [Suspect]
     Active Substance: ALDESLEUKIN
     Route: 065
     Dates: start: 20250627, end: 20250627
  5. ALDESLEUKIN [Suspect]
     Active Substance: ALDESLEUKIN
     Route: 065
     Dates: start: 20250627, end: 20250627
  6. CYCLOPHOSPHAMIDE [Suspect]
     Active Substance: CYCLOPHOSPHAMIDE
     Indication: Product used for unknown indication
     Route: 065
     Dates: start: 20250619, end: 20250619
  7. CYCLOPHOSPHAMIDE [Suspect]
     Active Substance: CYCLOPHOSPHAMIDE
     Route: 065
     Dates: start: 20250620
  8. CYCLOPHOSPHAMIDE [Suspect]
     Active Substance: CYCLOPHOSPHAMIDE
     Route: 065
     Dates: start: 20250621, end: 20250621
  9. FLUDARABINE [Suspect]
     Active Substance: FLUDARABINE PHOSPHATE
     Indication: Product used for unknown indication
     Route: 065
     Dates: start: 20250619, end: 20250619
  10. FLUDARABINE [Suspect]
     Active Substance: FLUDARABINE PHOSPHATE
     Route: 065
     Dates: start: 20250620, end: 20250620
  11. FLUDARABINE [Suspect]
     Active Substance: FLUDARABINE PHOSPHATE
     Route: 065
     Dates: start: 20250621, end: 20250621
  12. FLUDARABINE [Suspect]
     Active Substance: FLUDARABINE PHOSPHATE
     Route: 065
     Dates: start: 20250622, end: 20250622
  13. LIFILEUCEL [Suspect]
     Active Substance: LIFILEUCEL
     Indication: Product used for unknown indication
     Route: 065
     Dates: start: 20250624, end: 20250624
  14. METFORMIN [Concomitant]
     Active Substance: METFORMIN HYDROCHLORIDE
     Indication: Diabetes mellitus
     Route: 048
     Dates: start: 20250214
  15. ACETYLCYSTEINE [Concomitant]
     Active Substance: ACETYLCYSTEINE
     Indication: Cough
     Route: 048
     Dates: start: 20250214
  16. ACETYLCYSTEINE [Concomitant]
     Active Substance: ACETYLCYSTEINE
     Route: 048
     Dates: start: 20250519
  17. NEUROGEN E [Concomitant]
     Indication: Supplementation therapy
     Route: 048
     Dates: start: 20250214
  18. CODEINE PHOSPHATE\PROMETHAZINE HYDROCHLORIDE [Concomitant]
     Active Substance: CODEINE PHOSPHATE\PROMETHAZINE HYDROCHLORIDE
     Indication: Cough
     Route: 048
     Dates: start: 20250214
  19. SYSTANE (HYPROMELLOSE 2910 (4000 MPA.S)) [Concomitant]
     Active Substance: HYPROMELLOSE 2910 (4000 MPA.S)
     Indication: Vision blurred
     Dates: start: 20250214
  20. TIMOLOL MALEATE [Concomitant]
     Active Substance: TIMOLOL MALEATE
     Indication: Vision blurred
     Dates: start: 20250214
  21. OMEPRAZOLE [Concomitant]
     Active Substance: OMEPRAZOLE
     Indication: Prophylaxis
     Route: 048
     Dates: start: 20250214
  22. SANGOBION [ASCORBIC ACID;COPPER SULFATE;CYANOCOBALAMIN;FERROUS GLUCONA [Concomitant]
     Indication: Supplementation therapy
     Route: 048
     Dates: start: 20250404
  23. ACETAMINOPHEN [Concomitant]
     Active Substance: ACETAMINOPHEN
     Indication: Prophylaxis
     Route: 048
     Dates: start: 20250421
  24. ACETAMINOPHEN [Concomitant]
     Active Substance: ACETAMINOPHEN
     Route: 048
     Dates: start: 20250621
  25. BROMHEXINE [Concomitant]
     Active Substance: BROMHEXINE
     Indication: Cough
     Route: 048
     Dates: start: 20250421
  26. DEXTROMETHORPHAN [Concomitant]
     Active Substance: DEXTROMETHORPHAN
     Indication: Cough
     Route: 048
     Dates: start: 20250519
  27. LORAZEPAM [Concomitant]
     Active Substance: LORAZEPAM
     Indication: Insomnia
     Route: 048
     Dates: start: 20250522
  28. BECLOMETHASONE DIPROPIONATE\FORMOTEROL FUMARATE\GLYCOPYRROLATE [Concomitant]
     Active Substance: BECLOMETHASONE DIPROPIONATE\FORMOTEROL FUMARATE\GLYCOPYRROLATE
     Indication: Chronic obstructive pulmonary disease
     Dates: start: 20250527
  29. ALBUTEROL [Concomitant]
     Active Substance: ALBUTEROL
     Indication: Chronic obstructive pulmonary disease
     Dates: start: 20250618
  30. ACYCLOVIR [Concomitant]
     Active Substance: ACYCLOVIR
     Indication: Prophylaxis
     Dates: start: 20250618
  31. DIOSMIN\HESPERIDIN [Concomitant]
     Active Substance: DIOSMIN\HESPERIDIN
     Indication: Haemorrhoids
     Route: 048
     Dates: start: 20250629, end: 20250723
  32. HEPARINOID [Concomitant]
     Indication: Prophylaxis
     Route: 061
     Dates: start: 20250701
  33. ATORVASTATIN [Concomitant]
     Active Substance: ATORVASTATIN
     Indication: Hyperlipidaemia
     Route: 048
     Dates: start: 20250701
  34. EZETIMIBE [Concomitant]
     Active Substance: EZETIMIBE
     Indication: Hyperlipidaemia
     Route: 048
     Dates: start: 20250701
  35. FENOFIBRATE [Concomitant]
     Active Substance: FENOFIBRATE
     Indication: Hyperlipidaemia
     Route: 048
     Dates: start: 20250702
  36. PENTAMIDINE ISETHIONATE [Concomitant]
     Active Substance: PENTAMIDINE ISETHIONATE
     Indication: Prophylaxis
     Route: 042
     Dates: start: 20250707
  37. MAGNESIUM [Concomitant]
     Active Substance: MAGNESIUM
     Indication: Adverse event
     Route: 048
     Dates: start: 20250723, end: 20250730
  38. MAGNESIUM [Concomitant]
     Active Substance: MAGNESIUM
     Indication: Hypomagnesaemia
     Route: 048
     Dates: start: 20250805, end: 20250808
  39. MAGNESIUM [Concomitant]
     Active Substance: MAGNESIUM
     Route: 048
     Dates: start: 20250811
  40. FEXOFENADINE HYDROCHLORIDE [Concomitant]
     Active Substance: FEXOFENADINE HYDROCHLORIDE
     Indication: Adverse event
     Route: 048
     Dates: start: 20250723
  41. AMOXICILLIN\CLAVULANATE POTASSIUM [Concomitant]
     Active Substance: AMOXICILLIN\CLAVULANATE POTASSIUM
     Indication: Pyrexia
     Route: 048
     Dates: start: 20250801, end: 20250808
  42. UREA [Concomitant]
     Active Substance: UREA
     Indication: Prophylaxis
     Route: 061
     Dates: start: 20250811

REACTIONS (2)
  - Pneumonitis [Not Recovered/Not Resolved]
  - Nocardiosis [Unknown]

NARRATIVE: CASE EVENT DATE: 20250820
